FAERS Safety Report 5324893-9 (Version None)
Quarter: 2007Q2

REPORT INFORMATION
  Report Type: 
  Country: None (occurrence: None)
  Receive Date: 20070510
  Receipt Date: 20070510
  Transmission Date: 20071010
  Serious: Yes (Hospitalization, Other)
  Sender: FDA-Public Use
  Company Number: None

PATIENT
  Age: 39 Year
  Sex: Male
  Weight: 105 kg

DRUGS (2)
  1. ANDROGEL [Suspect]
     Indication: OLFACTO GENITAL DYSPLASIA
     Dosage: 1 PACKET OR 50 MG DAILY TOP
     Route: 061
     Dates: start: 20040101, end: 20070509
  2. PREVACID [Concomitant]

REACTIONS (1)
  - COLON CANCER STAGE II [None]
